FAERS Safety Report 8040704-5 (Version None)
Quarter: 2012Q1

REPORT INFORMATION
  Report Type: 
  Country: None (occurrence: None)
  Receive Date: 20120111
  Receipt Date: 20111230
  Transmission Date: 20120608
  Serious: No
  Sender: FDA-Public Use
  Company Number: US-AMGEN-USASP2011069779

PATIENT
  Age: 53 Year
  Sex: Male

DRUGS (1)
  1. ENBREL [Suspect]
     Indication: PSORIASIS
     Dosage: 50 MG,EVERY 9-10 DAYS
     Route: 058
     Dates: start: 20081105

REACTIONS (6)
  - WOUND INFECTION BACTERIAL [None]
  - INFECTION [None]
  - WOUND INFECTION FUNGAL [None]
  - ARTHRALGIA [None]
  - INFLUENZA [None]
  - PSORIASIS [None]
